FAERS Safety Report 23155619 (Version 1)
Quarter: 2023Q4

REPORT INFORMATION
  Report Type: Spontaneous
  Country: US (occurrence: US)
  Receive Date: 20231107
  Receipt Date: 20231107
  Transmission Date: 20240110
  Serious: No
  Sender: FDA-Public Use
  Company Number: US-SANOFI-01821215

PATIENT
  Sex: Female

DRUGS (1)
  1. DUPIXENT [Suspect]
     Active Substance: DUPILUMAB
     Dosage: 300 MG QOW
     Dates: start: 20210201

REACTIONS (5)
  - Injection site mass [Unknown]
  - Injection site vesicles [Unknown]
  - Injection site rash [Unknown]
  - Injection site pain [Unknown]
  - Condition aggravated [Unknown]
